FAERS Safety Report 5779954-7 (Version None)
Quarter: 2008Q2

REPORT INFORMATION
  Report Type: 
  Country: None (occurrence: None)
  Receive Date: 20080620
  Receipt Date: 20080620
  Transmission Date: 20081010
  Serious: Yes (Disabling)
  Sender: FDA-Public Use
  Company Number: None

PATIENT
  Age: 49 Year
  Sex: Female
  Weight: 46.2669 kg

DRUGS (1)
  1. HEP FLUSH KIT [Suspect]
     Indication: Q FEVER
     Dosage: 100 UNITS/ML, 5 ML YWICE DAILY IV
     Route: 042
     Dates: start: 20080310, end: 20080324

REACTIONS (22)
  - ANAPHYLACTIC SHOCK [None]
  - ANXIETY [None]
  - ASTHENIA [None]
  - CHEST DISCOMFORT [None]
  - DISORIENTATION [None]
  - DISSOCIATION [None]
  - DIZZINESS [None]
  - DYSPNOEA [None]
  - FALL [None]
  - HEADACHE [None]
  - INFLUENZA [None]
  - MALAISE [None]
  - NAUSEA [None]
  - PARAESTHESIA [None]
  - POOR QUALITY DRUG ADMINISTERED [None]
  - RENAL PAIN [None]
  - SELF ESTEEM DECREASED [None]
  - STOMACH DISCOMFORT [None]
  - SUICIDAL IDEATION [None]
  - THERAPEUTIC PRODUCT CONTAMINATION [None]
  - TREMOR [None]
  - WEIGHT DECREASED [None]
